FAERS Safety Report 7480825-9 (Version None)
Quarter: 2011Q2

REPORT INFORMATION
  Report Type: 
  Country: None (occurrence: None)
  Receive Date: 20110512
  Receipt Date: 20110512
  Transmission Date: 20111010
  Serious: Yes (Disabling)
  Sender: FDA-Public Use
  Company Number: None

PATIENT
  Age: 81 Year
  Sex: Female
  Weight: 48.0813 kg

DRUGS (1)
  1. SPIRIVA [Suspect]
     Indication: EMPHYSEMA
     Dosage: 1 CAPSULE 1 X DAY INHALE
     Route: 055
     Dates: start: 20110124, end: 20110308

REACTIONS (5)
  - FATIGUE [None]
  - HEART RATE ABNORMAL [None]
  - AKATHISIA [None]
  - EXTRASYSTOLES [None]
  - DISTURBANCE IN ATTENTION [None]
